FAERS Safety Report 7512688-7 (Version None)
Quarter: 2011Q2

REPORT INFORMATION
  Report Type: 
  Country: None (occurrence: None)
  Receive Date: 20110531
  Receipt Date: 20091119
  Transmission Date: 20111010
  Serious: Yes (Other)
  Sender: FDA-Public Use
  Company Number: US-BAYER-200940013NA

PATIENT
  Age: 51 Year
  Sex: Female

DRUGS (28)
  1. ALBUTEROL SULFATE AUTOHALER [Concomitant]
     Dosage: 17 G INHALER, 2 PUFFS
     Route: 055
  2. BENADRYL [Concomitant]
     Dosage: UNK
     Route: 048
  3. HEPARIN [Concomitant]
     Dosage: 53000 UNK, (PRIME)
     Dates: start: 20060502
  4. BICARBONAT SOD [Concomitant]
     Dosage: 200 MEQ,  (PRIME)
  5. MANNITOL [Concomitant]
     Dosage: 37.5 G, (PRIME)
     Dates: start: 20060502
  6. ALBUMIN (HUMAN) [Concomitant]
     Dosage: 100 UNK (PRIME)
     Dates: start: 20060502
  7. DIOVAN [Concomitant]
     Dosage: 80/12.5 MG
     Route: 048
  8. MAGNESIUM SULFATE [Concomitant]
     Dosage: 2 G, UNK
     Dates: start: 20060502
  9. POTASSIUM CHLORIDE [Concomitant]
     Dosage: 20 MEQ, (PRIME)
     Dates: start: 20060502
  10. NAPROXEN SODIUM [Concomitant]
     Dosage: 550 MG, BID
     Route: 048
  11. FUROSEMIDE [Concomitant]
     Dosage: 40 MG, QD
     Route: 048
  12. AMBIEN [Concomitant]
     Dosage: 10 MG, QHS
     Route: 048
  13. PROPOFOL [Concomitant]
     Dosage: UNK
     Dates: start: 20060502
  14. FENTANYL [Concomitant]
     Dosage: UNK
     Dates: start: 20060502
  15. ISOSORBIDE DINITRATE [Concomitant]
     Dosage: 30 MG, QD
     Route: 048
  16. BENADRYL [Concomitant]
     Dosage: UNK
     Dates: start: 20060502
  17. POTASSIUM CHLORIDE [Concomitant]
     Dosage: 20 MEQ, UNK
     Route: 048
  18. DETROL LA [Concomitant]
     Dosage: 4 MG, QD
     Route: 048
  19. ZOCOR [Concomitant]
     Dosage: 80 MG, QD
     Route: 048
  20. VALIUM [Concomitant]
     Route: 048
  21. VERSED [Concomitant]
     Dosage: UNK
     Dates: start: 20060502
  22. FORANE [Concomitant]
     Dosage: UNK
     Dates: start: 20060502
  23. LASIX [Concomitant]
     Dosage: 10 MG, UNK
     Dates: start: 20060502
  24. TRASYLOL [Suspect]
     Indication: CORONARY ARTERY BYPASS
     Route: 042
     Dates: start: 20060502
  25. ARICEPT [Concomitant]
     Dosage: 10 MG, QD
     Route: 048
  26. ACETYLSALICYLIC ACID SRT [Concomitant]
     Dosage: 325 MG, QD
     Route: 048
  27. DIGOXIN [Concomitant]
     Dosage: 80/12.5 DAILY
     Route: 048
  28. ANCEF [Concomitant]
     Dosage: 1 G, UNK
     Dates: start: 20060502

REACTIONS (9)
  - PAIN [None]
  - CEREBROVASCULAR ACCIDENT [None]
  - EMOTIONAL DISTRESS [None]
  - STRESS [None]
  - UNEVALUABLE EVENT [None]
  - FEAR [None]
  - ANHEDONIA [None]
  - ANXIETY [None]
  - INJURY [None]
